FAERS Safety Report 7110106-4 (Version None)
Quarter: 2010Q4

REPORT INFORMATION
  Report Type: 
  Country: None (occurrence: None)
  Receive Date: 20101116
  Receipt Date: 20101116
  Transmission Date: 20110411
  Serious: No
  Sender: FDA-Public Use
  Company Number: None

PATIENT
  Age: 38 Year
  Sex: Female
  Weight: 127 kg

DRUGS (1)
  1. ONDANSETRON HCL [Suspect]
     Dosage: 4 MG ONCE IV
     Route: 042
     Dates: start: 20101101, end: 20101101

REACTIONS (2)
  - ERYTHEMA [None]
  - RASH [None]
